FAERS Safety Report 14534312 (Version 1)
Quarter: 2018Q1

REPORT INFORMATION
  Report Type: Spontaneous
  Country: US (occurrence: US)
  Receive Date: 20180215
  Receipt Date: 20180215
  Transmission Date: 20180509
  Serious: No
  Sender: FDA-Public Use
  Company Number: US-TEVA-2018-US-859758

PATIENT
  Age: 76 Year
  Sex: Female

DRUGS (20)
  1. NORCO [Concomitant]
     Active Substance: ACETAMINOPHEN\HYDROCODONE BITARTRATE
  2. ATIVAN [Concomitant]
     Active Substance: LORAZEPAM
  3. IRON [Concomitant]
     Active Substance: IRON
  4. MULTIVITAMINS [Concomitant]
     Active Substance: VITAMINS
  5. ZOFRAN ODT [Concomitant]
     Active Substance: ONDANSETRON HYDROCHLORIDE
  6. AUSTEDO [Suspect]
     Active Substance: DEUTETRABENAZINE
     Indication: DYSKINESIA
     Dosage: NEW TITRATING
     Route: 048
     Dates: start: 20171128
  7. DOCUSATE SODIUM. [Concomitant]
     Active Substance: DOCUSATE SODIUM
  8. AUSTEDO [Suspect]
     Active Substance: DEUTETRABENAZINE
     Dosage: 24 MILLIGRAM DAILY;
     Route: 048
  9. CLARITIN [Concomitant]
     Active Substance: LORATADINE
  10. SIMVASTATIN. [Concomitant]
     Active Substance: SIMVASTATIN
  11. ABILIFY [Concomitant]
     Active Substance: ARIPIPRAZOLE
  12. CALCIUM 600 +D [Concomitant]
  13. FOSAMAX [Concomitant]
     Active Substance: ALENDRONATE SODIUM
  14. OMEPRAZOLE. [Concomitant]
     Active Substance: OMEPRAZOLE
  15. VITAMIN C [Concomitant]
     Active Substance: ASCORBIC ACID
  16. ZINC. [Concomitant]
     Active Substance: ZINC
  17. OXYBUTYNIN CHLORIDE ER [Concomitant]
     Active Substance: OXYBUTYNIN CHLORIDE
  18. LEVAQUIN [Concomitant]
     Active Substance: LEVOFLOXACIN
  19. MIRALAX [Concomitant]
     Active Substance: POLYETHYLENE GLYCOL 3350
  20. MUCINEX ALLERGY [Concomitant]
     Active Substance: FEXOFENADINE HYDROCHLORIDE

REACTIONS (2)
  - Dysphonia [Unknown]
  - Cough [Unknown]

NARRATIVE: CASE EVENT DATE: 201801
